FAERS Safety Report 13931726 (Version 1)
Quarter: 2017Q3

REPORT INFORMATION
  Report Type: Report from Study
  Country: None (occurrence: HU)
  Receive Date: 20170904
  Receipt Date: 20170904
  Transmission Date: 20171127
  Serious: Yes (Hospitalization)
  Sender: FDA-Public Use
  Company Number: HU-ABBVIE-17K-076-2090329-00

PATIENT
  Age: 76 Year
  Sex: Male

DRUGS (8)
  1. STALEVO [Concomitant]
     Active Substance: CARBIDOPA\ENTACAPONE\LEVODOPA
     Indication: PARKINSON^S DISEASE
     Dosage: 150MG/37.5MG/200MG, ONE TWO TIMES A TABLET AT NIGHT
     Route: 048
     Dates: start: 2005
  2. KVENTIAX [Concomitant]
     Active Substance: QUETIAPINE FUMARATE
     Indication: HALLUCINATION
     Route: 048
     Dates: start: 2014
  3. FRAXIPARINE [Concomitant]
     Active Substance: NADROPARIN CALCIUM
     Indication: ATRIAL FIBRILLATION
     Route: 058
     Dates: start: 201604
  4. DUODOPA [Suspect]
     Active Substance: CARBIDOPA\LEVODOPA
     Indication: PARKINSON^S DISEASE
     Dosage: MORNING DOSE 7.0ML; CONTINUOUS DOSE 5.1ML/H; EXTRA DOSE 2.0ML
     Route: 050
     Dates: start: 20150612
  5. GERODORM [Concomitant]
     Indication: SLEEP DISORDER
     Dosage: ONE TABLET IN THE EVENING
     Route: 048
     Dates: start: 20170615
  6. EXELON [Concomitant]
     Active Substance: RIVASTIGMINE TARTRATE
     Indication: COGNITIVE DISORDER
     Dosage: 9,5 MG/24 H
     Dates: start: 201606
  7. HUMA-PRONOL [Concomitant]
     Indication: ATRIAL FIBRILLATION
     Route: 048
     Dates: start: 20160405
  8. TIAPRIDAL [Concomitant]
     Active Substance: TIAPRIDE HYDROCHLORIDE
     Indication: SLEEP DISORDER
     Dosage: TWO TABLETS IN THE EVENING
     Dates: start: 20170630

REACTIONS (5)
  - Restlessness [Recovering/Resolving]
  - Fall [Not Recovered/Not Resolved]
  - Altered state of consciousness [Not Recovered/Not Resolved]
  - Aggression [Recovering/Resolving]
  - General physical health deterioration [Not Recovered/Not Resolved]

NARRATIVE: CASE EVENT DATE: 201708
